FAERS Safety Report 21030821 (Version 1)
Quarter: 2022Q3

REPORT INFORMATION
  Report Type: Spontaneous
  Country: US (occurrence: None)
  Receive Date: 20220701
  Receipt Date: 20220701
  Transmission Date: 20221026
  Serious: No
  Sender: FDA-Public Use
  Company Number: US-ROCHE-3021523

PATIENT
  Sex: Female

DRUGS (10)
  1. ACTEMRA [Suspect]
     Active Substance: TOCILIZUMAB
     Indication: Rheumatoid arthritis
     Dosage: EVERY WEEK
     Route: 058
  2. ACTEMRA [Suspect]
     Active Substance: TOCILIZUMAB
  3. HYDROXYCHLOROQUINE SULFATE [Concomitant]
     Active Substance: HYDROXYCHLOROQUINE SULFATE
  4. OMEPRAZOLE [Concomitant]
     Active Substance: OMEPRAZOLE
  5. LISINOPRIL [Concomitant]
     Active Substance: LISINOPRIL
  6. FOLIC ACID [Concomitant]
     Active Substance: FOLIC ACID
  7. SYNTHROID [Concomitant]
     Active Substance: LEVOTHYROXINE SODIUM
  8. METHOTREXATE SODIUM [Concomitant]
     Active Substance: METHOTREXATE SODIUM
  9. CHLORHEXIDINE GLUCONATE [Concomitant]
     Active Substance: CHLORHEXIDINE GLUCONATE
  10. CLINDAMYCIN HYDROCHLORIDE [Concomitant]
     Active Substance: CLINDAMYCIN HYDROCHLORIDE

REACTIONS (2)
  - Memory impairment [Unknown]
  - Product dose omission issue [Unknown]
